FAERS Safety Report 16024710 (Version 1)
Quarter: 2019Q1

REPORT INFORMATION
  Report Type: Spontaneous
  Country: US (occurrence: US)
  Receive Date: 20190301
  Receipt Date: 20190301
  Transmission Date: 20190418
  Serious: Yes (Hospitalization, Other)
  Sender: FDA-Public Use
  Company Number: US-MYLANLABS-2019M1017479

PATIENT

DRUGS (13)
  1. LATANOPROST. [Concomitant]
     Active Substance: LATANOPROST
     Indication: GLAUCOMA
     Dosage: 1 DROP IN THE RIGHT EYE AT NIGHT
     Route: 047
  2. TIMOLOL MALEATE. [Concomitant]
     Active Substance: TIMOLOL MALEATE
     Indication: GLAUCOMA
     Dosage: 1 DROP IN RIGHT EYE DAILY
     Route: 047
  3. DIPHENOXYLATE HYDROCHLORIDE AND ATROPINE SULFATE TABLETS, USP [Suspect]
     Active Substance: ATROPINE\DIPHENOXYLATE HYDROCHLORIDE
     Indication: FREQUENT BOWEL MOVEMENTS
     Dosage: NEVER TOOK MORE THAN 2 PER DAY
     Route: 048
     Dates: start: 20170601, end: 20170930
  4. VITAMINS WITH MINERALS [Concomitant]
     Active Substance: MINERALS\VITAMINS
  5. EQUATE                             /00002701/ [Concomitant]
     Dosage: UNK
  6. FUROSEMIDE. [Concomitant]
     Active Substance: FUROSEMIDE
     Indication: FLUID RETENTION
     Dosage: UNK UNK, AM
     Route: 048
  7. FLUOXETINE [Concomitant]
     Active Substance: FLUOXETINE HYDROCHLORIDE
     Indication: ANXIETY
     Dosage: UNK UNK, AM
     Route: 048
  8. VITAMIN C [Concomitant]
     Active Substance: ASCORBIC ACID
  9. OMEPRAZOLE. [Concomitant]
     Active Substance: OMEPRAZOLE
     Indication: GASTROOESOPHAGEAL REFLUX DISEASE
     Dosage: UNK UNK, QD
     Route: 048
     Dates: start: 201706
  10. KLOR-CON [Concomitant]
     Active Substance: POTASSIUM CHLORIDE
     Dosage: 1 DOSAGE FORM, QD
     Route: 048
  11. VITAMIN B12 [Concomitant]
     Active Substance: CYANOCOBALAMIN
  12. PROBIOTIC ACIDOPHILUS              /00079701/ [Concomitant]
     Active Substance: LACTOBACILLUS ACIDOPHILUS
  13. LACTAID [Concomitant]
     Active Substance: LACTASE

REACTIONS (8)
  - Fall [Recovered/Resolved]
  - Weight decreased [Unknown]
  - Balance disorder [Recovered/Resolved]
  - Coeliac disease [Unknown]
  - Frequent bowel movements [Not Recovered/Not Resolved]
  - Drug ineffective [Unknown]
  - Faeces hard [Not Recovered/Not Resolved]
  - Head injury [Recovered/Resolved]

NARRATIVE: CASE EVENT DATE: 2017
